FAERS Safety Report 14612698 (Version 1)
Quarter: 2018Q1

REPORT INFORMATION
  Report Type: Spontaneous
  Country: US (occurrence: US)
  Receive Date: 20180308
  Receipt Date: 20180308
  Transmission Date: 20180509
  Serious: Yes (Other)
  Sender: FDA-Public Use
  Company Number: US-BAYER-2018-044328

PATIENT
  Age: 72 Year
  Sex: Female

DRUGS (5)
  1. MOTRIN [Suspect]
     Active Substance: IBUPROFEN
  2. NAPROXEN. [Suspect]
     Active Substance: NAPROXEN
  3. ALEVE [Suspect]
     Active Substance: NAPROXEN SODIUM
     Dosage: UNK
  4. CELEBREX [Suspect]
     Active Substance: CELECOXIB
  5. FLECTOR [DICLOFENAC SODIUM] [Suspect]
     Active Substance: DICLOFENAC SODIUM

REACTIONS (3)
  - Intervertebral disc protrusion [Unknown]
  - Dyspepsia [Unknown]
  - Gastric ulcer [Unknown]
